FAERS Safety Report 9677140 (Version 1)
Quarter: 2013Q4

REPORT INFORMATION
  Report Type: Spontaneous
  Country: US (occurrence: US)
  Receive Date: 20131108
  Receipt Date: 20131108
  Transmission Date: 20140711
  Serious: Yes (Other)
  Sender: FDA-Public Use
  Company Number: US-JNJFOC-20131016412

PATIENT
  Sex: Female

DRUGS (3)
  1. TYLENOL UNSPECIFIED [Suspect]
     Route: 065
  2. TYLENOL UNSPECIFIED [Suspect]
     Indication: PAIN MANAGEMENT
     Route: 065
  3. MUSCLE RELAXANTS (NOS) [Suspect]
     Indication: FIBROMYALGIA
     Route: 065

REACTIONS (1)
  - Thrombosis [Unknown]
